FAERS Safety Report 16360659 (Version 2)
Quarter: 2019Q3

REPORT INFORMATION
  Report Type: Spontaneous
  Country: CN (occurrence: CN)
  Receive Date: 20190528
  Receipt Date: 20190701
  Transmission Date: 20191004
  Serious: Yes (Other)
  Sender: FDA-Public Use
  Company Number: CN-ROCHE-2324312

PATIENT
  Age: 49 Year
  Sex: Male

DRUGS (25)
  1. CAMPTO [Concomitant]
     Active Substance: IRINOTECAN
     Route: 065
     Dates: start: 20181118
  2. TEGAFUR [Concomitant]
     Active Substance: TEGAFUR
     Indication: METASTASES TO RECTUM
     Route: 065
     Dates: start: 20131015
  3. CETUXIMAB. [Concomitant]
     Active Substance: CETUXIMAB
     Indication: RECTAL CANCER
  4. CAMPTO [Concomitant]
     Active Substance: IRINOTECAN
     Indication: RECTAL CANCER
     Dosage: DAY2
     Route: 065
     Dates: start: 20170420
  5. TOPOTECAN [Concomitant]
     Active Substance: TOPOTECAN HYDROCHLORIDE
     Indication: RECTAL CANCER
  6. CAPECITABINE. [Suspect]
     Active Substance: CAPECITABINE
     Indication: RECTAL CANCER
  7. LONSURF [Concomitant]
     Active Substance: TIPIRACIL HYDROCHLORIDE\TRIFLURIDINE
     Indication: METASTASES TO RECTUM
     Route: 048
  8. AVASTIN [Suspect]
     Active Substance: BEVACIZUMAB
     Indication: METASTASES TO RECTUM
     Route: 065
     Dates: start: 20111203
  9. REGORAFENIB. [Suspect]
     Active Substance: REGORAFENIB
     Indication: RECTAL CANCER
  10. REGORAFENIB. [Suspect]
     Active Substance: REGORAFENIB
     Indication: METASTASES TO RECTUM
     Dosage: FROM DAY1 TO DAY 21, 7 DAYS OFF, REPEATED EVERY 28 DAYS
     Route: 065
     Dates: start: 20170621, end: 20170808
  11. OXALIPLATIN. [Concomitant]
     Active Substance: OXALIPLATIN
     Indication: METASTASES TO RECTUM
  12. OXALIPLATIN. [Concomitant]
     Active Substance: OXALIPLATIN
     Indication: RECTAL CANCER
  13. TEGAFUR [Concomitant]
     Active Substance: TEGAFUR
     Indication: RECTAL CANCER
  14. TOPOTECAN [Concomitant]
     Active Substance: TOPOTECAN HYDROCHLORIDE
     Indication: METASTASES TO RECTUM
     Dosage: DAY1, DAY8, DAY15
     Route: 065
     Dates: start: 20161020
  15. LONSURF [Concomitant]
     Active Substance: TIPIRACIL HYDROCHLORIDE\TRIFLURIDINE
     Indication: RECTAL CANCER
  16. AVASTIN [Suspect]
     Active Substance: BEVACIZUMAB
     Dosage: SUBSEQUENT DOSES ON 29/JAN/2012, 18/FEB/2012, 11/MAR/2012, 05/APR/2012, 27/APR/2012, 16/JUN/2012, 07
     Route: 065
     Dates: start: 20131025
  17. AVASTIN [Suspect]
     Active Substance: BEVACIZUMAB
     Dosage: 400MG/500MG
     Route: 065
     Dates: start: 20120915
  18. CIS-PLATINUM [Concomitant]
     Active Substance: CISPLATIN
     Indication: RECTAL CANCER
  19. CETUXIMAB. [Concomitant]
     Active Substance: CETUXIMAB
     Indication: METASTASES TO RECTUM
     Dosage: ON DAY 1
     Route: 065
     Dates: start: 20160805
  20. CAMPTO [Concomitant]
     Active Substance: IRINOTECAN
     Indication: METASTASES TO RECTUM
     Dosage: DAY2
     Route: 065
     Dates: start: 20160805
  21. PEMBROLIZUMAB. [Concomitant]
     Active Substance: PEMBROLIZUMAB
     Indication: RECTAL CANCER
  22. CAPECITABINE. [Suspect]
     Active Substance: CAPECITABINE
     Indication: METASTASES TO RECTUM
     Dosage: SUBSEQUENT DOSES ON 29/JAN/2012, 18/FEB/2012, 11/MAR/2012, 05/APR/2012 AND 27/APR/2012.
     Route: 048
     Dates: start: 20120108
  23. AVASTIN [Suspect]
     Active Substance: BEVACIZUMAB
     Indication: RECTAL CANCER
     Dosage: D (1)
     Route: 065
     Dates: start: 20111218
  24. CIS-PLATINUM [Concomitant]
     Active Substance: CISPLATIN
     Indication: METASTASES TO RECTUM
     Route: 065
     Dates: start: 20120108
  25. PEMBROLIZUMAB. [Concomitant]
     Active Substance: PEMBROLIZUMAB
     Indication: METASTASES TO RECTUM
     Route: 065
     Dates: start: 20170829

REACTIONS (8)
  - Decreased appetite [Unknown]
  - Palmar-plantar erythrodysaesthesia syndrome [Unknown]
  - Bone marrow toxicity [Unknown]
  - Treatment noncompliance [Unknown]
  - Asthenia [Unknown]
  - Neuropathy peripheral [Unknown]
  - Protein urine present [Unknown]
  - Renal impairment [Unknown]
